FAERS Safety Report 8319467-1 (Version None)
Quarter: 2012Q2

REPORT INFORMATION
  Report Type: 
  Country: None (occurrence: None)
  Receive Date: 20120426
  Receipt Date: 20120426
  Transmission Date: 20120825
  Serious: Yes (Hospitalization)
  Sender: FDA-Public Use
  Company Number: None

PATIENT
  Sex: Male
  Weight: 84.5 kg

DRUGS (18)
  1. DECADRON [Suspect]
     Indication: MULTIPLE MYELOMA
     Dosage: 20MG ONCE A WEEK PO
     Route: 048
     Dates: start: 20080101
  2. ASPIRIN [Concomitant]
  3. CALCIUM/VIT D [Concomitant]
  4. COMBIVENT [Concomitant]
  5. MUSINEX [Concomitant]
  6. SPIRIVA [Concomitant]
  7. LACTUOSE [Concomitant]
  8. DILAUDID [Concomitant]
  9. COLACE [Concomitant]
  10. DULCOLAX [Concomitant]
  11. SYMBICORT [Concomitant]
  12. MS CONTIN [Concomitant]
  13. LIPITOR [Concomitant]
  14. LASIX [Concomitant]
  15. MAGNESIUM [Concomitant]
  16. BIAXIN [Concomitant]
  17. CC-4047 (POMALIDOMIDE) 2MG CELGENE [Suspect]
     Indication: MULTIPLE MYELOMA
     Dosage: 2MG Q DAY PO
     Route: 048
     Dates: start: 20110215
  18. POTASSIUM CHLORIDE [Concomitant]

REACTIONS (1)
  - ATRIAL FIBRILLATION [None]
